FAERS Safety Report 5982056-8 (Version None)
Quarter: 2008Q4

REPORT INFORMATION
  Report Type: 
  Country: None (occurrence: None)
  Receive Date: 20081202
  Receipt Date: 20081113
  Transmission Date: 20090506
  Serious: Yes (Hospitalization)
  Sender: FDA-Public Use
  Company Number: 20080324

PATIENT
  Age: 22 Year
  Sex: Female
  Weight: 86.1834 kg

DRUGS (1)
  1. CYANOCOBALAMIN [Suspect]
     Dosage: 2 ML MONTHLY INTRAMUSCULAR
     Route: 030
     Dates: start: 20070531

REACTIONS (1)
  - HEADACHE [None]
